FAERS Safety Report 20430735 (Version 1)
Quarter: 2022Q1

REPORT INFORMATION
  Report Type: Report from Study
  Country: AU (occurrence: AU)
  Receive Date: 20220204
  Receipt Date: 20220204
  Transmission Date: 20220424
  Serious: Yes (Hospitalization)
  Sender: FDA-Public Use
  Company Number: AU-SERVIER-S21002565

PATIENT

DRUGS (23)
  1. PEGASPARGASE [Suspect]
     Active Substance: PEGASPARGASE
     Indication: Refractory cancer
     Dosage: 2500 IU/M2(1675 MG), EVERY 1 WEEK
     Route: 042
     Dates: start: 20210302
  2. VENETOCLAX [Suspect]
     Active Substance: VENETOCLAX
     Indication: Refractory cancer
     Dosage: 200 MG, QD
     Route: 048
     Dates: start: 20210302, end: 20210302
  3. VENETOCLAX [Suspect]
     Active Substance: VENETOCLAX
     Dosage: 400 MG, QD
     Route: 048
     Dates: start: 20210303, end: 20210309
  4. VENETOCLAX [Suspect]
     Active Substance: VENETOCLAX
     Dosage: 400 MG, QD
     Route: 048
     Dates: start: 20210312
  5. VINCRISTINE SULFATE [Suspect]
     Active Substance: VINCRISTINE SULFATE
     Indication: Refractory cancer
     Dosage: 2 MG, EVERY 1 WEEK
     Route: 042
     Dates: start: 20210305
  6. DAUNORUBICIN HYDROCHLORIDE [Suspect]
     Active Substance: DAUNORUBICIN HYDROCHLORIDE
     Indication: Chemotherapy
     Dosage: 40 MG/M2, QD, FOR INDUCTION CHEMO
     Route: 042
     Dates: start: 20210305, end: 20210305
  7. TN UNSPECIFIED [Concomitant]
     Indication: Prophylaxis
     Dosage: 20 MG, QD
     Route: 048
     Dates: start: 20210208
  8. TN UNSPECIFIED [Concomitant]
     Indication: Chemotherapy
     Dosage: 45 MG, TID, FOR INDUCTION CHEMO
     Route: 048
     Dates: start: 20210205, end: 20210206
  9. TN UNSPECIFIED [Concomitant]
     Dosage: 30 MG, TID
     Route: 048
     Dates: start: 20210206, end: 20210309
  10. TN UNSPECIFIED [Concomitant]
     Indication: Pain in jaw
     Dosage: 790 MG, AS REQ^D
     Route: 048
     Dates: start: 20210210
  11. TN UNSPECIFIED [Concomitant]
     Indication: Pain in extremity
  12. TN UNSPECIFIED [Concomitant]
     Indication: Back pain
  13. TN UNSPECIFIED [Concomitant]
     Indication: Pyrexia
  14. Osmolax [Concomitant]
     Indication: Constipation
     Dosage: 17 G, QD
     Route: 048
     Dates: start: 20210221
  15. TN UNSPECIFIED [Concomitant]
     Indication: Prophylaxis
     Dosage: 450 MG, TID
     Route: 048
     Dates: start: 20210302, end: 20210305
  16. TN UNSPECIFIED [Concomitant]
     Indication: Prophylaxis
     Dosage: 1 ML, QID
     Route: 048
     Dates: start: 20210302
  17. TN UNSPECIFIED [Concomitant]
     Indication: Dental care
     Dosage: 10 ML, QID
     Dates: start: 20210302
  18. TN UNSPECIFIED [Concomitant]
     Indication: Central venous catheterisation
     Dosage: 2 ML, AS REQ^D
     Dates: start: 20210226
  19. TN UNSPECIFIED [Concomitant]
     Indication: Pain in jaw
     Dosage: 5.3 MG, AS REQ^D
     Route: 048
     Dates: start: 20210210
  20. TN UNSPECIFIED [Concomitant]
     Indication: Pain in extremity
  21. TN UNSPECIFIED [Concomitant]
     Indication: Back pain
  22. PIPERACILLIN SODIUM\TAZOBACTAM SODIUM [Concomitant]
     Active Substance: PIPERACILLIN SODIUM\TAZOBACTAM SODIUM
     Indication: Product used for unknown indication
     Dosage: 4 G, QD
     Route: 042
     Dates: start: 20210303, end: 20210306
  23. TN UNSPECIFIED [Concomitant]
     Indication: Prophylaxis
     Dosage: 7 MG, AS REQ^D
     Route: 042
     Dates: start: 20210205

REACTIONS (2)
  - Vascular device infection [Recovered/Resolved]
  - Pyrexia [Recovered/Resolved]

NARRATIVE: CASE EVENT DATE: 20210305
